FAERS Safety Report 4806272-3 (Version None)
Quarter: 2005Q4

REPORT INFORMATION
  Report Type: 
  Country: None (occurrence: None)
  Receive Date: 20051019
  Receipt Date: 20050928
  Transmission Date: 20060501
  Serious: Yes (Other)
  Sender: FDA-Public Use
  Company Number: USA0509109462

PATIENT
  Age: 74 Year
  Sex: Female

DRUGS (6)
  1. CYMBALTA [Suspect]
     Dates: start: 20050921, end: 20050901
  2. TYLENOL [Concomitant]
  3. METFORMIN HCL [Concomitant]
  4. COUMADIN [Concomitant]
  5. ALTACE [Concomitant]
  6. THALIDOMIDE [Concomitant]

REACTIONS (1)
  - BLOOD PRESSURE INCREASED [None]
